FAERS Safety Report 8067485 (Version 2)
Quarter: 2012Q4

REPORT INFORMATION
  Report Type: 
  Country: US (occurrence: US)
  Receive Date: 20110803
  Receipt Date: 20120905
  Transmission Date: 20130627
  Serious: Yes (Hospitalization)
  Sender: FDA-Public Use
  Company Number: US-GLAXOSMITHKLINE-B0736540A

PATIENT
  Age: 63 Year
  Sex: Male

DRUGS (1)
  1. ROSIGLITAZONE [Suspect]
     Indication: DIABETES MELLITUS
     Dosage: 4MG Per day
     Route: 048
     Dates: start: 2005, end: 201007

REACTIONS (7)
  - Acute myocardial infarction [Not Recovered/Not Resolved]
  - Coronary artery disease [Unknown]
  - Hypertension [Unknown]
  - Blood cholesterol increased [Unknown]
  - Catheterisation cardiac [Unknown]
  - Angioplasty [Unknown]
  - Stent placement [Unknown]
